FAERS Safety Report 15390107 (Version 1)
Quarter: 2018Q3

REPORT INFORMATION
  Report Type: Report from Study
  Country: None (occurrence: US)
  Receive Date: 20180917
  Receipt Date: 20180917
  Transmission Date: 20181010
  Serious: Yes (Hospitalization, Other)
  Sender: FDA-Public Use
  Company Number: US-ABBVIE-18K-163-2417913-00

PATIENT
  Sex: Female
  Weight: 61.74 kg

DRUGS (16)
  1. HUMIRA [Suspect]
     Active Substance: ADALIMUMAB
     Route: 058
     Dates: start: 201808
  2. CALCIUM+VITAMIN D3 [Concomitant]
     Active Substance: CALCIUM\CHOLECALCIFEROL
     Indication: VITAMIN SUPPLEMENTATION
  3. CRESTOR [Concomitant]
     Active Substance: ROSUVASTATIN CALCIUM
     Indication: BLOOD CHOLESTEROL INCREASED
  4. VITAMIN D3 [Concomitant]
     Active Substance: CHOLECALCIFEROL
     Indication: VITAMIN SUPPLEMENTATION
  5. LEXAPRO [Concomitant]
     Active Substance: ESCITALOPRAM OXALATE
     Indication: ANXIETY
  6. DILAUDID [Concomitant]
     Active Substance: HYDROMORPHONE HYDROCHLORIDE
     Indication: PAIN
  7. TOFRANIL [Concomitant]
     Active Substance: IMIPRAMINE HYDROCHLORIDE
     Indication: MIGRAINE
  8. CULTURELLE [Concomitant]
     Active Substance: LACTOBACILLUS RHAMNOSUS
     Indication: DYSPEPSIA
  9. FORTEO [Concomitant]
     Active Substance: TERIPARATIDE
     Indication: OSTEOGENESIS IMPERFECTA
  10. HUMIRA [Suspect]
     Active Substance: ADALIMUMAB
     Indication: RHEUMATOID ARTHRITIS
     Route: 058
     Dates: start: 2008, end: 201807
  11. LATANOPROST. [Concomitant]
     Active Substance: LATANOPROST
     Indication: EYE DISORDER
  12. ASPIRIN. [Concomitant]
     Active Substance: ASPIRIN
     Indication: THROMBOSIS PROPHYLAXIS
  13. COZAAR [Concomitant]
     Active Substance: LOSARTAN POTASSIUM
     Indication: HYPERTENSION
  14. PREDNISONE. [Concomitant]
     Active Substance: PREDNISONE
     Indication: RHEUMATOID ARTHRITIS
  15. ZANTAC [Concomitant]
     Active Substance: RANITIDINE HYDROCHLORIDE
     Indication: DYSPEPSIA
  16. IMITREX [Concomitant]
     Active Substance: SUMATRIPTAN SUCCINATE
     Indication: MIGRAINE

REACTIONS (2)
  - Bladder prolapse [Recovered/Resolved]
  - Uterine prolapse [Recovered/Resolved]

NARRATIVE: CASE EVENT DATE: 2013
